FAERS Safety Report 11538175 (Version 1)
Quarter: 2015Q3

REPORT INFORMATION
  Report Type: Spontaneous
  Country: GB (occurrence: GB)
  Receive Date: 20150922
  Receipt Date: 20150922
  Transmission Date: 20151125
  Serious: Yes (Other)
  Sender: FDA-Public Use
  Company Number: ALCN2015GB005768

PATIENT
  Age: 18 Year
  Sex: Male
  Weight: 91 kg

DRUGS (4)
  1. METHOTREXATE [Concomitant]
     Active Substance: METHOTREXATE
     Indication: UVEITIS
     Dosage: UNK
     Route: 065
  2. METHYLPREDNISOLONE. [Suspect]
     Active Substance: METHYLPREDNISOLONE
     Indication: PREOPERATIVE CARE
     Dosage: 2.5 G, ONCE/SINGLE
     Route: 042
  3. DEXAMETHASONE. [Suspect]
     Active Substance: DEXAMETHASONE
     Indication: PRODUCT USED FOR UNKNOWN INDICATION
     Dosage: VARYING DOSES
     Route: 047
  4. PREDNISOLONE ACETATE. [Suspect]
     Active Substance: PREDNISOLONE ACETATE
     Indication: PRODUCT USED FOR UNKNOWN INDICATION
     Dosage: VARYING DOSES
     Route: 047

REACTIONS (5)
  - Cushingoid [Recovering/Resolving]
  - Central obesity [Recovering/Resolving]
  - Weight increased [Recovering/Resolving]
  - Cushing^s syndrome [Recovering/Resolving]
  - Skin striae [Recovering/Resolving]
